FAERS Safety Report 7632928-3 (Version None)
Quarter: 2011Q3

REPORT INFORMATION
  Report Type: 
  Country: None (occurrence: None)
  Receive Date: 20110725
  Receipt Date: 20110719
  Transmission Date: 20111222
  Serious: Yes (Other)
  Sender: FDA-Public Use
  Company Number: PT-AMGEN-QUU420059

PATIENT
  Age: 73 Year
  Sex: Male
  Weight: 64 kg

DRUGS (2)
  1. NPLATE [Suspect]
     Indication: IDIOPATHIC THROMBOCYTOPENIC PURPURA
     Dosage: 1 A?G/KG, QWK
     Route: 042
     Dates: start: 20100512
  2. UNSPECIFIED ANTICOAGULANT [Concomitant]

REACTIONS (6)
  - PRURITUS GENERALISED [None]
  - BONE PAIN [None]
  - RED BLOOD CELL ABNORMALITY [None]
  - MEGAKARYOCYTES [None]
  - OEDEMA PERIPHERAL [None]
  - HOT FLUSH [None]
